FAERS Safety Report 10257707 (Version 1)
Quarter: 2014Q2

REPORT INFORMATION
  Report Type: Spontaneous
  Country: US (occurrence: US)
  Receive Date: 20140625
  Receipt Date: 20140625
  Transmission Date: 20141212
  Serious: No
  Sender: FDA-Public Use
  Company Number: US-B.I. PHARMACEUTICALS,INC./RIDGEFIELD-2014-BI-27651BP

PATIENT
  Age: 86 Year
  Sex: Female
  Weight: 61 kg

DRUGS (13)
  1. PRADAXA [Suspect]
     Indication: ATRIAL FIBRILLATION
     Dosage: 300 MG
     Route: 048
     Dates: start: 2012
  2. DISOPYRAMIDE [Concomitant]
     Indication: HYPERTENSION
     Dosage: 300 MG
     Route: 048
  3. METOPROLOL [Concomitant]
     Indication: HEART RATE IRREGULAR
     Dosage: 25 MG
     Route: 048
  4. METOPROLOL [Concomitant]
     Dosage: 12.5 MG
     Route: 048
  5. VITAMIN B3 [Concomitant]
     Route: 048
  6. AMLODIPINE [Concomitant]
     Indication: LIPIDS INCREASED
     Dosage: 5 MG
     Route: 048
     Dates: start: 2004
  7. OMEPRAZOLE [Concomitant]
     Indication: DYSPEPSIA
     Dosage: 40 MG
     Route: 048
     Dates: start: 2012
  8. FIBER [Concomitant]
     Indication: DIVERTICULITIS
     Route: 048
  9. FISH OIL [Concomitant]
     Indication: DIVERTICULITIS
     Route: 048
  10. OXYTROL [Concomitant]
     Indication: HYPERTONIC BLADDER
     Dosage: FORMULATION: PATCH; STRENGTH: 1 PATCH
     Route: 061
     Dates: start: 201403
  11. FLAX SEED OIL [Concomitant]
     Route: 048
  12. ZINC [Concomitant]
     Route: 048
  13. VITAMIN B12 [Concomitant]
     Route: 048

REACTIONS (2)
  - Hyperthyroidism [Not Recovered/Not Resolved]
  - Eye haemorrhage [Recovered/Resolved]
